FAERS Safety Report 6265675-3 (Version None)
Quarter: 2009Q3

REPORT INFORMATION
  Report Type: 
  Country: None (occurrence: None)
  Receive Date: 20090709
  Receipt Date: 20090709
  Transmission Date: 20100115
  Serious: Yes (Life-Threatening, Hospitalization)
  Sender: FDA-Public Use
  Company Number: None

PATIENT
  Age: 6 Month
  Sex: Male
  Weight: 8.6183 kg

DRUGS (4)
  1. OMNICEF [Suspect]
     Indication: BACTERIAL INFECTION
     Dosage: 1 TSP QD PO  2 DOSES
     Route: 048
     Dates: start: 20090702, end: 20090703
  2. OMNICEF [Suspect]
     Indication: VIRAL INFECTION
     Dosage: 1 TSP QD PO  2 DOSES
     Route: 048
     Dates: start: 20090702, end: 20090703
  3. MOTRIN [Concomitant]
  4. TYLENOL [Concomitant]

REACTIONS (1)
  - RECTAL HAEMORRHAGE [None]
